FAERS Safety Report 8555366-8 (Version None)
Quarter: 2012Q3

REPORT INFORMATION
  Report Type: 
  Country: None (occurrence: None)
  Receive Date: 20120731
  Receipt Date: 20111216
  Transmission Date: 20120928
  Serious: Yes (Hospitalization)
  Sender: FDA-Public Use
  Company Number: US-ASTRAZENECA-2011SE27084

PATIENT
  Age: 24198 Day
  Sex: Female

DRUGS (15)
  1. GLUCOTROL XL [Concomitant]
  2. ACIPHEX [Concomitant]
  3. BYETTA [Concomitant]
     Indication: DIABETES MELLITUS
     Dosage: 10 CC DAILY
  4. NEURONTIN [Concomitant]
  5. LIPITOR [Concomitant]
  6. LANTUS [Concomitant]
     Indication: DIABETES MELLITUS
     Dosage: 70 CC DAILY
  7. DIOVAN [Concomitant]
  8. FLEXERIL [Concomitant]
  9. PREMARIN [Concomitant]
  10. SEROQUEL [Suspect]
     Indication: SLEEP DISORDER
     Route: 048
     Dates: start: 20070101
  11. PROCARDIA XL [Concomitant]
  12. SINGULAIR [Concomitant]
  13. LEVOTHROID [Concomitant]
  14. SEROQUEL [Suspect]
     Indication: DEPRESSION
     Route: 048
     Dates: start: 20070101
  15. ATENOLOL [Concomitant]

REACTIONS (10)
  - DRUG PRESCRIBING ERROR [None]
  - CHEST PAIN [None]
  - PNEUMONIA [None]
  - HEADACHE [None]
  - DYSPHONIA [None]
  - THERAPEUTIC RESPONSE UNEXPECTED [None]
  - MALAISE [None]
  - INSOMNIA [None]
  - INFLUENZA [None]
  - DRUG DOSE OMISSION [None]
